FAERS Safety Report 14584964 (Version 1)
Quarter: 2018Q1

REPORT INFORMATION
  Report Type: Report from Study
  Country: US (occurrence: US)
  Receive Date: 20180301
  Receipt Date: 20180301
  Transmission Date: 20180509
  Serious: No
  Sender: FDA-Public Use
  Company Number: US-AMGEN-USASL2018025323

PATIENT
  Sex: Male

DRUGS (2)
  1. ELIDEL [Concomitant]
     Active Substance: PIMECROLIMUS
     Dosage: UNK, AS NECESSARY
  2. ENBREL [Suspect]
     Active Substance: ETANERCEPT
     Indication: PSORIASIS
     Dosage: UNK, Q2WK
     Route: 065

REACTIONS (2)
  - Intentional product misuse [Unknown]
  - Psoriasis [Unknown]
